FAERS Safety Report 5247333-7 (Version None)
Quarter: 2007Q1

REPORT INFORMATION
  Report Type: 
  Country: None (occurrence: None)
  Receive Date: 20070223
  Receipt Date: 20070223
  Transmission Date: 20070707
  Serious: Yes (Hospitalization, Other)
  Sender: FDA-Public Use
  Company Number: None

PATIENT
  Age: 42 Year
  Sex: Female
  Weight: 46.9 kg

DRUGS (12)
  1. TACROLIMUS  1MG  FUJISAWA [Suspect]
     Indication: IMMUNOSUPPRESSION
     Dosage: 4MG  TWICE DAILY PO
     Route: 048
     Dates: start: 20031001
  2. TACROLIMUS  1MG  FUJISAWA [Suspect]
     Indication: PROPHYLAXIS AGAINST TRANSPLANT REJECTION
     Dosage: 4MG  TWICE DAILY PO
     Route: 048
     Dates: start: 20031001
  3. HYDROCORTISONE [Concomitant]
  4. GANCICLOVIR [Concomitant]
  5. DIPHENHYDRAMINE HCL [Concomitant]
  6. OPIUM TINCTURE [Concomitant]
  7. HYDROCORTISONE [Concomitant]
  8. SERTRALINE [Concomitant]
  9. ESOMEPRAZOLE MAGNESIUM [Concomitant]
  10. ZOLPIDEM [Concomitant]
  11. ONDANSETRON [Concomitant]
  12. ACETAMINOPHEN [Concomitant]

REACTIONS (4)
  - BLOOD PHOSPHORUS INCREASED [None]
  - CONVULSION [None]
  - DRUG TOXICITY [None]
  - RENAL FAILURE ACUTE [None]
